FAERS Safety Report 20629819 (Version 4)
Quarter: 2025Q2

REPORT INFORMATION
  Report Type: Report from Study
  Country: CA (occurrence: None)
  Receive Date: 20220324
  Receipt Date: 20250331
  Transmission Date: 20250716
  Serious: Yes (Life-Threatening, Hospitalization, Other)
  Sender: ORION
  Company Number: CA-PFIZER INC-2018477063

PATIENT
  Age: 61 Year
  Sex: Female
  Weight: 70 kg

DRUGS (96)
  1. METHOTREXATE [Suspect]
     Active Substance: METHOTREXATE
     Indication: Product used for unknown indication
  2. ALTACE [Suspect]
     Active Substance: RAMIPRIL
     Indication: Product used for unknown indication
  3. ALTACE [Suspect]
     Active Substance: RAMIPRIL
  4. AMLODIPINE BESYLATE [Suspect]
     Active Substance: AMLODIPINE BESYLATE
     Indication: Product used for unknown indication
  5. AMLODIPINE BESYLATE [Suspect]
     Active Substance: AMLODIPINE BESYLATE
  6. METHYLPREDNISOLONE SODIUM SUCCINATE [Suspect]
     Active Substance: METHYLPREDNISOLONE SODIUM SUCCINATE
     Indication: Premedication
  7. METHYLPREDNISOLONE SODIUM SUCCINATE [Suspect]
     Active Substance: METHYLPREDNISOLONE SODIUM SUCCINATE
  8. MORPHINE SULFATE [Suspect]
     Active Substance: MORPHINE SULFATE
     Indication: Product used for unknown indication
  9. MORPHINE SULFATE [Suspect]
     Active Substance: MORPHINE SULFATE
  10. NEXIUM [Suspect]
     Active Substance: ESOMEPRAZOLE MAGNESIUM
     Indication: Product used for unknown indication
  11. NEXIUM 24HR [Suspect]
     Active Substance: ESOMEPRAZOLE MAGNESIUM
     Indication: Product used for unknown indication
  12. NEXIUM 24HR [Suspect]
     Active Substance: ESOMEPRAZOLE MAGNESIUM
  13. PROCHLORPERAZINE [Suspect]
     Active Substance: PROCHLORPERAZINE
     Indication: Vomiting
  14. GRAVOL [Suspect]
     Active Substance: DIMENHYDRINATE
     Indication: Premedication
  15. GRAVOL [Suspect]
     Active Substance: DIMENHYDRINATE
  16. GRAVOL [Suspect]
     Active Substance: DIMENHYDRINATE
  17. GRAVOL [Suspect]
     Active Substance: DIMENHYDRINATE
  18. GRAVOL [Suspect]
     Active Substance: DIMENHYDRINATE
  19. RITUXAN [Suspect]
     Active Substance: RITUXIMAB
     Indication: Sjogren^s syndrome
  20. RITUXAN [Suspect]
     Active Substance: RITUXIMAB
     Indication: Rheumatoid arthritis
  21. RITUXAN [Suspect]
     Active Substance: RITUXIMAB
  22. RITUXAN [Suspect]
     Active Substance: RITUXIMAB
  23. RITUXAN [Suspect]
     Active Substance: RITUXIMAB
  24. RITUXAN [Suspect]
     Active Substance: RITUXIMAB
  25. LISINOPRIL [Suspect]
     Active Substance: LISINOPRIL
     Indication: Hypertension
  26. ACETAMINOPHEN [Suspect]
     Active Substance: ACETAMINOPHEN
     Indication: Product used for unknown indication
  27. ATACAND [Suspect]
     Active Substance: CANDESARTAN CILEXETIL
     Indication: Hypertension
  28. GLICLAZIDE [Suspect]
     Active Substance: GLICLAZIDE
     Indication: Diabetes mellitus
  29. GLICLAZIDE [Suspect]
     Active Substance: GLICLAZIDE
     Indication: Blood pressure abnormal
  30. DIPHENHYDRAMINE HYDROCHLORIDE [Suspect]
     Active Substance: DIPHENHYDRAMINE HYDROCHLORIDE
     Indication: Premedication
  31. PREDNISONE [Suspect]
     Active Substance: PREDNISONE
     Indication: Product used for unknown indication
  32. ACETAMINOPHEN [Suspect]
     Active Substance: ACETAMINOPHEN
     Indication: Product used for unknown indication
  33. ESOMEPRAZOLE SODIUM [Suspect]
     Active Substance: ESOMEPRAZOLE SODIUM
     Indication: Product used for unknown indication
  34. PROCHLORPERAZINE MALEATE [Suspect]
     Active Substance: PROCHLORPERAZINE MALEATE
     Indication: Vomiting
  35. SYNTHROID [Suspect]
     Active Substance: LEVOTHYROXINE SODIUM
     Indication: Product used for unknown indication
  36. SYNTHROID [Suspect]
     Active Substance: LEVOTHYROXINE SODIUM
  37. NEXIUM I.V. [Suspect]
     Active Substance: ESOMEPRAZOLE SODIUM
     Indication: Product used for unknown indication
  38. CANDESARTAN CILEXETIL [Suspect]
     Active Substance: CANDESARTAN CILEXETIL
     Indication: Hypertension
  39. GLICLAZIDE [Suspect]
     Active Substance: GLICLAZIDE
     Indication: Diabetes mellitus
  40. GLICLAZIDE [Suspect]
     Active Substance: GLICLAZIDE
     Indication: Blood pressure abnormal
  41. ZOFRAN [Suspect]
     Active Substance: ONDANSETRON HYDROCHLORIDE
     Indication: Product used for unknown indication
  42. ZOFRAN [Suspect]
     Active Substance: ONDANSETRON HYDROCHLORIDE
  43. LEVOTHYROXINE SODIUM [Suspect]
     Active Substance: LEVOTHYROXINE SODIUM
     Indication: Product used for unknown indication
  44. METFORMIN HYDROCHLORIDE [Suspect]
     Active Substance: METFORMIN HYDROCHLORIDE
     Indication: Product used for unknown indication
  45. LIPITOR [Suspect]
     Active Substance: ATORVASTATIN CALCIUM
     Indication: Product used for unknown indication
  46. ALISKIREN HEMIFUMARATE [Suspect]
     Active Substance: ALISKIREN HEMIFUMARATE
     Indication: Microalbuminuria
  47. ALISKIREN HEMIFUMARATE [Suspect]
     Active Substance: ALISKIREN HEMIFUMARATE
     Indication: Hypertension
  48. CALCIUM CARBONATE [Suspect]
     Active Substance: CALCIUM CARBONATE
     Indication: Product used for unknown indication
  49. ALISKIREN [Suspect]
     Active Substance: ALISKIREN
     Indication: Product used for unknown indication
  50. COSENTYX [Suspect]
     Active Substance: SECUKINUMAB
     Indication: Psoriatic arthropathy
  51. COSENTYX [Suspect]
     Active Substance: SECUKINUMAB
     Indication: Psoriasis
  52. COSENTYX [Suspect]
     Active Substance: SECUKINUMAB
     Indication: Hypertension
  53. ERGOCALCIFEROL [Suspect]
     Active Substance: ERGOCALCIFEROL
     Indication: Product used for unknown indication
  54. JANUVIA [Suspect]
     Active Substance: SITAGLIPTIN PHOSPHATE
     Indication: Product used for unknown indication
  55. BISOPROLOL [Suspect]
     Active Substance: BISOPROLOL
     Indication: Product used for unknown indication
  56. IRBESARTAN [Suspect]
     Active Substance: IRBESARTAN
     Indication: Hypertension
  57. PANTOPRAZOLE [Suspect]
     Active Substance: PANTOPRAZOLE
     Indication: Product used for unknown indication
  58. RITUXIMAB [Suspect]
     Active Substance: RITUXIMAB
     Indication: Sjogren^s syndrome
  59. RITUXIMAB [Suspect]
     Active Substance: RITUXIMAB
  60. RITUXIMAB [Suspect]
     Active Substance: RITUXIMAB
  61. OMEPRAZOLE [Suspect]
     Active Substance: OMEPRAZOLE
     Indication: Product used for unknown indication
  62. RAMIPRIL [Suspect]
     Active Substance: RAMIPRIL
     Indication: Product used for unknown indication
  63. PEDIAPRED [Suspect]
     Active Substance: PREDNISOLONE SODIUM PHOSPHATE
     Indication: Product used for unknown indication
  64. HYDROCHLOROTHIAZIDE [Concomitant]
     Active Substance: HYDROCHLOROTHIAZIDE
  65. DEPO-MEDROL [Concomitant]
     Active Substance: METHYLPREDNISOLONE ACETATE
  66. DOMPERIDONE [Concomitant]
     Active Substance: DOMPERIDONE
  67. LEVOTHYROXINE [Concomitant]
     Active Substance: LEVOTHYROXINE
  68. LEVOTHYROXINE [Concomitant]
     Active Substance: LEVOTHYROXINE
  69. EZETIMIBE [Concomitant]
     Active Substance: EZETIMIBE
  70. EZETIMIBE [Concomitant]
     Active Substance: EZETIMIBE
  71. HUMALOG [Concomitant]
     Active Substance: INSULIN LISPRO
  72. HUMALOG [Concomitant]
     Active Substance: INSULIN LISPRO
  73. JANUVIA [Concomitant]
     Active Substance: SITAGLIPTIN PHOSPHATE
  74. LANTUS [Concomitant]
     Active Substance: INSULIN GLARGINE
  75. LANTUS [Concomitant]
     Active Substance: INSULIN GLARGINE
  76. LEVEMIR [Concomitant]
     Active Substance: INSULIN DETEMIR
  77. LYRICA [Concomitant]
     Active Substance: PREGABALIN
  78. LYRICA [Concomitant]
     Active Substance: PREGABALIN
  79. PANTOPRAZOLE SODIUM [Concomitant]
     Active Substance: PANTOPRAZOLE SODIUM
  80. PANTOPRAZOLE SODIUM [Concomitant]
     Active Substance: PANTOPRAZOLE SODIUM
  81. ROSUVASTATIN CALCIUM [Concomitant]
     Active Substance: ROSUVASTATIN CALCIUM
  82. ROSUVASTATIN CALCIUM [Concomitant]
     Active Substance: ROSUVASTATIN CALCIUM
  83. TYLENOL [Concomitant]
     Active Substance: ACETAMINOPHEN
  84. TYLENOL [Concomitant]
     Active Substance: ACETAMINOPHEN
  85. ACITRETIN [Concomitant]
     Active Substance: ACITRETIN
  86. ASPIRIN [Concomitant]
     Active Substance: ASPIRIN
  87. AVAPRO [Concomitant]
     Active Substance: IRBESARTAN
  88. COAL TAR [Concomitant]
     Active Substance: COAL TAR
  89. CYMBALTA [Concomitant]
     Active Substance: DULOXETINE HYDROCHLORIDE
  90. DOVONEX [Concomitant]
     Active Substance: CALCIPOTRIENE
  91. ESOMEPRAZOLE [Concomitant]
     Active Substance: ESOMEPRAZOLE
  92. PANTOPRAZOLE MAGNESIUM [Concomitant]
     Active Substance: PANTOPRAZOLE MAGNESIUM
  93. TELMISARTAN [Concomitant]
     Active Substance: TELMISARTAN
  94. STELARA [Concomitant]
     Active Substance: USTEKINUMAB
  95. ZOLPIDEM [Concomitant]
     Active Substance: ZOLPIDEM TARTRATE
  96. SYNTHROID [Concomitant]
     Active Substance: LEVOTHYROXINE SODIUM

REACTIONS (53)
  - Headache [Not Recovered/Not Resolved]
  - Arterial occlusive disease [Not Recovered/Not Resolved]
  - Gastrointestinal disorder [Not Recovered/Not Resolved]
  - Nausea [Not Recovered/Not Resolved]
  - Blood pressure increased [Not Recovered/Not Resolved]
  - Chest discomfort [Not Recovered/Not Resolved]
  - Asthenia [Not Recovered/Not Resolved]
  - Palpitations [Not Recovered/Not Resolved]
  - Gangrene [Not Recovered/Not Resolved]
  - Angina pectoris [Not Recovered/Not Resolved]
  - Sinusitis [Not Recovered/Not Resolved]
  - Cataract [Not Recovered/Not Resolved]
  - Rheumatoid arthritis [Not Recovered/Not Resolved]
  - Arthritis [Not Recovered/Not Resolved]
  - Fatigue [Not Recovered/Not Resolved]
  - Affect lability [Not Recovered/Not Resolved]
  - Carotid artery thrombosis [Not Recovered/Not Resolved]
  - Coordination abnormal [Not Recovered/Not Resolved]
  - Cystitis [Not Recovered/Not Resolved]
  - Dysarthria [Not Recovered/Not Resolved]
  - Eating disorder [Not Recovered/Not Resolved]
  - Fall [Not Recovered/Not Resolved]
  - Hemiparesis [Not Recovered/Not Resolved]
  - Hemiplegia [Not Recovered/Not Resolved]
  - Influenza [Not Recovered/Not Resolved]
  - Influenza like illness [Not Recovered/Not Resolved]
  - Motor dysfunction [Not Recovered/Not Resolved]
  - Muscle spasticity [Not Recovered/Not Resolved]
  - Muscular weakness [Not Recovered/Not Resolved]
  - Neurologic neglect syndrome [Not Recovered/Not Resolved]
  - Pain [Not Recovered/Not Resolved]
  - Personality disorder [Not Recovered/Not Resolved]
  - Pneumonia [Not Recovered/Not Resolved]
  - Psoriasis [Not Recovered/Not Resolved]
  - Respiratory tract congestion [Not Recovered/Not Resolved]
  - Rhinorrhoea [Not Recovered/Not Resolved]
  - Sensory loss [Not Recovered/Not Resolved]
  - Sinus congestion [Not Recovered/Not Resolved]
  - Sinus disorder [Not Recovered/Not Resolved]
  - Skin exfoliation [Not Recovered/Not Resolved]
  - Skin haemorrhage [Not Recovered/Not Resolved]
  - Sneezing [Not Recovered/Not Resolved]
  - Dysphagia [Not Recovered/Not Resolved]
  - Malaise [Not Recovered/Not Resolved]
  - Nasopharyngitis [Not Recovered/Not Resolved]
  - Pyrexia [Not Recovered/Not Resolved]
  - Anxiety [Not Recovered/Not Resolved]
  - Cerebrovascular accident [Not Recovered/Not Resolved]
  - Confusional state [Not Recovered/Not Resolved]
  - Cough [Not Recovered/Not Resolved]
  - Vomiting [Not Recovered/Not Resolved]
  - Aphasia [Not Recovered/Not Resolved]
  - Adjustment disorder [Not Recovered/Not Resolved]
